FAERS Safety Report 12475351 (Version 2)
Quarter: 2016Q2

REPORT INFORMATION
  Report Type: Report from Study
  Country: US (occurrence: US)
  Receive Date: 20160617
  Receipt Date: 20160624
  Transmission Date: 20160815
  Serious: Yes (Other)
  Sender: FDA-Public Use
  Company Number: US-ROCHE-1755760

PATIENT
  Sex: Male
  Weight: 43.9 kg

DRUGS (2)
  1. NUTROPIN AQ [Suspect]
     Active Substance: SOMATROPIN
     Indication: SARCOMA
  2. NUTROPIN AQ [Suspect]
     Active Substance: SOMATROPIN
     Indication: GROWTH HORMONE DEFICIENCY
     Route: 058
     Dates: start: 201501, end: 201603

REACTIONS (10)
  - Ascites [Unknown]
  - Metastases to peritoneum [Unknown]
  - Abdominal pain [Unknown]
  - Internal haemorrhage [Unknown]
  - Decreased appetite [Unknown]
  - Abdominal distension [Unknown]
  - Necrosis [Unknown]
  - Weight increased [Unknown]
  - Neoplasm [Unknown]
  - Abdominal mass [Unknown]
